FAERS Safety Report 10028256 (Version 1)
Quarter: 2014Q1

REPORT INFORMATION
  Report Type: Spontaneous
  Country: KW (occurrence: KW)
  Receive Date: 20140321
  Receipt Date: 20140321
  Transmission Date: 20141002
  Serious: Yes (Congenital Anomaly, Other)
  Sender: FDA-Public Use
  Company Number: KW-UCBSA-115020

PATIENT
  Age: 28 Year
  Sex: Female

DRUGS (1)
  1. KEPPRA [Suspect]
     Indication: PARTIAL SEIZURES

REACTIONS (3)
  - Stillbirth [Unknown]
  - Uterine haemorrhage [Unknown]
  - Pregnancy [Recovered/Resolved]
